FAERS Safety Report 21229514 (Version 1)
Quarter: 2022Q3

REPORT INFORMATION
  Report Type: Spontaneous
  Country: US (occurrence: US)
  Receive Date: 20220818
  Receipt Date: 20220818
  Transmission Date: 20221027
  Serious: No
  Sender: FDA-Public Use
  Company Number: US-PFIZER INC-202201060795

PATIENT
  Sex: Female

DRUGS (1)
  1. DEPO-ESTRADIOL [Suspect]
     Active Substance: ESTRADIOL CYPIONATE
     Dosage: UNK, ONCE MONTHLY

REACTIONS (1)
  - Hot flush [Unknown]
